FAERS Safety Report 9316662 (Version 1)
Quarter: 2013Q2

REPORT INFORMATION
  Report Type: Spontaneous
  Country: US (occurrence: None)
  Receive Date: 20130528
  Receipt Date: 20130528
  Transmission Date: 20140414
  Serious: Yes (Disabling, Other)
  Sender: FDA-Public Use
  Company Number: None

PATIENT
  Age: 27 Year
  Sex: Female
  Weight: 77.11 kg

DRUGS (1)
  1. LEVAQUIN [Suspect]
     Indication: KIDNEY INFECTION
     Dosage: 10 PILLS; 1 TAB A DAY  PO
     Route: 048
     Dates: start: 20130511, end: 20130520

REACTIONS (13)
  - Neck pain [None]
  - Pain in extremity [None]
  - Arthralgia [None]
  - Hypoaesthesia [None]
  - Muscular weakness [None]
  - Myalgia [None]
  - Muscle spasms [None]
  - Insomnia [None]
  - Anxiety [None]
  - Panic attack [None]
  - Headache [None]
  - Palpitations [None]
  - Burning sensation [None]
